FAERS Safety Report 6049501-3 (Version None)
Quarter: 2009Q1

REPORT INFORMATION
  Report Type: 
  Country: None (occurrence: None)
  Receive Date: 20090121
  Receipt Date: 20090107
  Transmission Date: 20090719
  Serious: Yes (Death)
  Sender: FDA-Public Use
  Company Number: 2009S1000308

PATIENT

DRUGS (1)
  1. METFORMIN HCL [Suspect]
     Indication: GESTATIONAL DIABETES
     Dosage: 500 MG; TWICE A DAY TRANSPLACENTAL
     Route: 064
     Dates: start: 20080917, end: 20081113

REACTIONS (5)
  - FOETAL GROWTH RETARDATION [None]
  - INTRA-UTERINE DEATH [None]
  - MATERNAL DRUGS AFFECTING FOETUS [None]
  - OESOPHAGEAL ATRESIA [None]
  - TRACHEO-OESOPHAGEAL FISTULA [None]
